FAERS Safety Report 18745553 (Version 2)
Quarter: 2021Q1

REPORT INFORMATION
  Report Type: Report from Study
  Country: US (occurrence: US)
  Receive Date: 20210115
  Receipt Date: 20210210
  Transmission Date: 20210419
  Serious: Yes (Hospitalization)
  Sender: FDA-Public Use
  Company Number: US-ASTELLAS-2020US045632

PATIENT
  Age: 55 Year
  Sex: Male

DRUGS (4)
  1. GLECAPREVIR;PIBRENTASVIR [Concomitant]
     Active Substance: GLECAPREVIR\PIBRENTASVIR
     Indication: HEPATITIS C
     Dosage: G/P GLECAPREVIR 300?MG AND PIBRENTASVIR 120?MG, ONCE DAILY
     Route: 065
  2. TACROLIMUS. [Concomitant]
     Active Substance: TACROLIMUS
     Indication: RENAL TRANSPLANT
     Dosage: UNK UNK, UNKNOWN FREQ.
     Route: 065
  3. TACROLIMUS. [Suspect]
     Active Substance: TACROLIMUS
     Indication: RENAL TRANSPLANT
     Dosage: 50 MG, TOTAL DOSE (ONLY ONE EVENING DOSE)
     Route: 048
     Dates: start: 20190919, end: 20190919
  4. TACROLIMUS. [Suspect]
     Active Substance: TACROLIMUS
     Route: 048
     Dates: start: 201909, end: 201911

REACTIONS (4)
  - Immunosuppressant drug level increased [Recovered/Resolved]
  - Renal tubular necrosis [Recovered/Resolved]
  - Accidental overdose [Unknown]
  - Toxicity to various agents [Recovered/Resolved]

NARRATIVE: CASE EVENT DATE: 201909
